FAERS Safety Report 6237734-2 (Version None)
Quarter: 2009Q2

REPORT INFORMATION
  Report Type: 
  Country: None (occurrence: None)
  Receive Date: 20090618
  Receipt Date: 20090611
  Transmission Date: 20091009
  Serious: Yes (Other)
  Sender: FDA-Public Use
  Company Number: 2009SP012839

PATIENT
  Age: 42 Year
  Sex: Male

DRUGS (1)
  1. MIRALAX [Suspect]
     Indication: COLONOSCOPY
     Dosage: 34 GM; ONCE; PO
     Route: 048
     Dates: start: 20090610

REACTIONS (10)
  - ASTHENIA [None]
  - CHILLS [None]
  - DYSPNOEA [None]
  - ERYTHEMA [None]
  - FLUSHING [None]
  - HYPERSENSITIVITY [None]
  - HYPOTENSION [None]
  - OCULAR HYPERAEMIA [None]
  - PRURITUS [None]
  - VOMITING [None]
